FAERS Safety Report 17496217 (Version 6)
Quarter: 2021Q1

REPORT INFORMATION
  Report Type: Spontaneous
  Country: DE (occurrence: DE)
  Receive Date: 20200304
  Receipt Date: 20210316
  Transmission Date: 20210419
  Serious: Yes (Other)
  Sender: FDA-Public Use
  Company Number: PHHY2019DE172840

PATIENT
  Sex: Male

DRUGS (6)
  1. VALSARTAN ? 1 A PHARMA 80 MG FILMTABLETTEN [Suspect]
     Active Substance: VALSARTAN
     Dosage: 1 DF, QD
     Route: 065
     Dates: start: 20150414
  2. VALSARTAN ? 1 A PHARMA 80 MG FILMTABLETTEN [Suspect]
     Active Substance: VALSARTAN
     Indication: HYPERTENSION
     Dosage: 1 DF, QD
     Route: 065
     Dates: start: 20140908, end: 20180718
  3. VALSARTAN. [Concomitant]
     Active Substance: VALSARTAN
     Indication: HYPERTENSION
     Dosage: UNK
     Route: 065
     Dates: start: 2014
  4. DYMISTA [Concomitant]
     Active Substance: AZELASTINE HYDROCHLORIDE\FLUTICASONE PROPIONATE
     Indication: NASAL SEPTUM DEVIATION
     Dosage: UNK
     Route: 065
  5. VALSARTAN. [Concomitant]
     Active Substance: VALSARTAN
     Dosage: UNK
     Route: 065
     Dates: start: 2014
  6. L?THYROXIN?HENNING [Concomitant]
     Active Substance: LEVOTHYROXINE SODIUM
     Indication: HYPOTHYROIDISM
     Dosage: 1 DF, QD (MORNING)
     Route: 065
     Dates: start: 2003

REACTIONS (28)
  - Mental disorder [Unknown]
  - Infection [Unknown]
  - Duodenitis [Not Recovered/Not Resolved]
  - Weight decreased [Unknown]
  - Nausea [Unknown]
  - Quality of life decreased [Unknown]
  - Chronic gastritis [Not Recovered/Not Resolved]
  - Fear [Unknown]
  - Injury [Unknown]
  - Anxiety [Unknown]
  - Fatigue [Unknown]
  - Sleep disorder [Unknown]
  - Gastrooesophageal reflux disease [Not Recovered/Not Resolved]
  - Iron deficiency [Unknown]
  - Emotional distress [Unknown]
  - Abdominal pain [Not Recovered/Not Resolved]
  - Tremor [Unknown]
  - Stress [Unknown]
  - Abdominal discomfort [Not Recovered/Not Resolved]
  - Anxiety disorder [Not Recovered/Not Resolved]
  - Depression [Unknown]
  - Product contamination [Unknown]
  - Dizziness [Unknown]
  - Bradycardia [Unknown]
  - Dyspepsia [Not Recovered/Not Resolved]
  - Abdominal pain upper [Not Recovered/Not Resolved]
  - Headache [Unknown]
  - Hyperhidrosis [Unknown]

NARRATIVE: CASE EVENT DATE: 2016
